FAERS Safety Report 9787999 (Version 1)
Quarter: 2013Q4

REPORT INFORMATION
  Report Type: Spontaneous
  Country: US (occurrence: None)
  Receive Date: 20131227
  Receipt Date: 20131227
  Transmission Date: 20140711
  Serious: No
  Sender: FDA-Public Use
  Company Number: None

PATIENT
  Age: 89 Year
  Sex: Female

DRUGS (1)
  1. LEVOFLOXACIN 250MG [Suspect]
     Indication: PROPHYLAXIS URINARY TRACT INFECTION
     Dosage: ONE TABLET  ONCE DAILY  TAKEN BY MOUTH
     Route: 048
     Dates: start: 20131205, end: 20131210

REACTIONS (2)
  - Pruritus [None]
  - Pruritus [None]
